FAERS Safety Report 7679052-1 (Version None)
Quarter: 2011Q3

REPORT INFORMATION
  Report Type: 
  Country: None (occurrence: None)
  Receive Date: 20110812
  Receipt Date: 20110802
  Transmission Date: 20111222
  Serious: Yes (Death, Other)
  Sender: FDA-Public Use
  Company Number: US-AMGEN-USASP2011039322

PATIENT
  Age: 79 Year
  Sex: Male

DRUGS (7)
  1. FLOMAX [Concomitant]
  2. PRAVASTATIN [Concomitant]
  3. GLIPIZIDE [Concomitant]
  4. HYDROCHLOROTHIAZIDE [Concomitant]
  5. ISOSORBIDE MONONITRATE [Concomitant]
  6. METOPROLOL TARTRATE [Concomitant]
  7. XGEVA [Suspect]
     Indication: METASTASES TO BONE
     Dates: start: 20110606

REACTIONS (3)
  - DEATH [None]
  - EPISTAXIS [None]
  - INTERNATIONAL NORMALISED RATIO INCREASED [None]
